FAERS Safety Report 7129216-0 (Version None)
Quarter: 2010Q4

REPORT INFORMATION
  Report Type: 
  Country: None (occurrence: None)
  Receive Date: 20101130
  Receipt Date: 20101118
  Transmission Date: 20110411
  Serious: Yes (Other)
  Sender: FDA-Public Use
  Company Number: JP-ASTRAZENECA-2010SE55927

PATIENT
  Age: 26 Year
  Sex: Male

DRUGS (8)
  1. SEROQUEL [Suspect]
     Route: 048
  2. TEGRETOL [Concomitant]
     Route: 048
  3. CERCINE [Concomitant]
     Route: 048
  4. AKINETON [Concomitant]
     Route: 048
  5. ARTANE [Concomitant]
     Route: 048
  6. BENZALIN [Concomitant]
     Route: 048
  7. RIVOTRIL [Concomitant]
     Route: 048
  8. ZYPREXA [Concomitant]
     Route: 048

REACTIONS (4)
  - AGGRESSION [None]
  - HOSTILITY [None]
  - MALAISE [None]
  - PERSECUTORY DELUSION [None]
